FAERS Safety Report 7401001-1 (Version None)
Quarter: 2011Q1

REPORT INFORMATION
  Report Type: 
  Country: None (occurrence: None)
  Receive Date: 20110329
  Receipt Date: 20110314
  Transmission Date: 20110831
  Serious: Yes (Disabling, Other)
  Sender: FDA-Public Use
  Company Number: 2011-0526

PATIENT
  Age: 62 Year
  Sex: Female

DRUGS (9)
  1. RESTYLANE (HYALURONIC ACID) [Concomitant]
  2. DYSPORT [Suspect]
     Indication: SKIN WRINKLING
     Dosage: 120 UNITS (120 UNITS,SINGLE CYCLE),INTRAMUSCULAR
     Route: 030
     Dates: start: 20110215, end: 20110215
  3. DYSPORT [Suspect]
     Indication: OFF LABEL USE
     Dosage: 120 UNITS (120 UNITS,SINGLE CYCLE),INTRAMUSCULAR
     Route: 030
     Dates: start: 20110215, end: 20110215
  4. JUVEDERM (HYALURONIC ACID) [Concomitant]
  5. THYPINONE (PROTIRELIN) [Concomitant]
  6. MULTIIVITAMIN (MULTIVITAMIN /00831701/) [Concomitant]
  7. PROGESTERONE [Concomitant]
  8. XYLOCAINE [Concomitant]
  9. ESTROVEN (HERBAL PREPARATION) [Concomitant]

REACTIONS (9)
  - NAUSEA [None]
  - NASOPHARYNGITIS [None]
  - FATIGUE [None]
  - FEELING ABNORMAL [None]
  - UNEVALUABLE EVENT [None]
  - DYSPHONIA [None]
  - URINARY INCONTINENCE [None]
  - TOXICITY TO VARIOUS AGENTS [None]
  - VERTIGO [None]
